FAERS Safety Report 17731730 (Version 6)
Quarter: 2021Q4

REPORT INFORMATION
  Report Type: Report from Study
  Country: FR (occurrence: FR)
  Receive Date: 20200501
  Receipt Date: 20211126
  Transmission Date: 20220303
  Serious: Yes (Other)
  Sender: FDA-Public Use
  Company Number: FR-002147023-NVSC2020FR115521

PATIENT

DRUGS (14)
  1. RUXOLITINIB [Suspect]
     Active Substance: RUXOLITINIB
     Indication: Primary myelofibrosis
     Dosage: 10 MG, DAILY
     Route: 048
     Dates: start: 20200309, end: 20200319
  2. RUXOLITINIB [Suspect]
     Active Substance: RUXOLITINIB
     Dosage: 20 MG, DAILY
     Route: 048
     Dates: start: 20200319, end: 202003
  3. RUXOLITINIB [Suspect]
     Active Substance: RUXOLITINIB
     Dosage: 10 MG, DAILY
     Route: 048
     Dates: start: 20200326, end: 20200402
  4. RUXOLITINIB [Suspect]
     Active Substance: RUXOLITINIB
     Dosage: 20 MG, DAILY
     Route: 048
     Dates: start: 20200402, end: 20200409
  5. RUXOLITINIB [Suspect]
     Active Substance: RUXOLITINIB
     Dosage: 10 MG, DAILY
     Route: 048
     Dates: start: 20200409, end: 20200410
  6. RUXOLITINIB [Suspect]
     Active Substance: RUXOLITINIB
     Dosage: 10 MG, DAILY
     Route: 048
     Dates: start: 20200413, end: 20200430
  7. RUXOLITINIB [Suspect]
     Active Substance: RUXOLITINIB
     Dosage: 20 MG, DAILY
     Route: 048
     Dates: start: 20200430, end: 20200519
  8. RUXOLITINIB [Suspect]
     Active Substance: RUXOLITINIB
     Dosage: 10 MG, DAILY
     Route: 048
     Dates: start: 20200519, end: 20200912
  9. RUXOLITINIB [Suspect]
     Active Substance: RUXOLITINIB
     Dosage: 15 MG, DAILY
     Route: 048
     Dates: start: 20200912, end: 20201124
  10. RUXOLITINIB [Suspect]
     Active Substance: RUXOLITINIB
     Dosage: 20 MG, DAILY
     Route: 048
     Dates: start: 20201124, end: 20201222
  11. RUXOLITINIB [Suspect]
     Active Substance: RUXOLITINIB
     Dosage: 10 MG, DAILY
     Route: 048
     Dates: start: 20210131, end: 20210215
  12. RUXOLITINIB [Suspect]
     Active Substance: RUXOLITINIB
     Dosage: 10 MG, DAILY
     Route: 048
     Dates: start: 20210225, end: 20210319
  13. RUXOLITINIB [Suspect]
     Active Substance: RUXOLITINIB
     Dosage: 10 MG (DAILY)
     Route: 048
     Dates: end: 20210407
  14. RUXOLITINIB [Suspect]
     Active Substance: RUXOLITINIB
     Dosage: 10 MG (DAILY)
     Route: 048
     Dates: start: 20210408

REACTIONS (8)
  - Anaemia [Not Recovered/Not Resolved]
  - Cough [Recovering/Resolving]
  - Gastrooesophageal reflux disease [Unknown]
  - Hyperuricaemia [Recovering/Resolving]
  - Infection [Recovered/Resolved]
  - Memory impairment [Not Recovered/Not Resolved]
  - Neutropenia [Recovered/Resolved]
  - Thrombocytopenia [Recovering/Resolving]

NARRATIVE: CASE EVENT DATE: 20200319
